FAERS Safety Report 9497865 (Version 2)
Quarter: 2013Q3

REPORT INFORMATION
  Report Type: Spontaneous
  Country: US (occurrence: US)
  Receive Date: 20130904
  Receipt Date: 20130904
  Transmission Date: 20140515
  Serious: No
  Sender: FDA-Public Use
  Company Number: US-AMGEN-USASP2013054728

PATIENT
  Age: 51 Year
  Sex: Male
  Weight: 126.98 kg

DRUGS (2)
  1. ENBREL [Suspect]
     Indication: RHEUMATOID ARTHRITIS
     Dosage: 50 MG, WEEKLY
     Route: 058
     Dates: start: 201303
  2. METHOTREXATE [Suspect]
     Indication: PRODUCT USED FOR UNKNOWN INDICATION
     Dosage: 0.6 CC, QWK
     Route: 065

REACTIONS (4)
  - Dry skin [Not Recovered/Not Resolved]
  - Skin fissures [Unknown]
  - Rash [Recovering/Resolving]
  - Dermatitis contact [Unknown]
